FAERS Safety Report 24013065 (Version 1)
Quarter: 2024Q2

REPORT INFORMATION
  Report Type: Spontaneous
  Country: FR (occurrence: FR)
  Receive Date: 20240626
  Receipt Date: 20240626
  Transmission Date: 20240716
  Serious: Yes (Hospitalization)
  Sender: FDA-Public Use
  Company Number: None

PATIENT
  Age: 74 Year
  Sex: Male
  Weight: 90 kg

DRUGS (9)
  1. OLANZAPINE [Suspect]
     Active Substance: OLANZAPINE
     Indication: Depression
     Dosage: DAILY DOSE: 5 MILLIGRAM
     Route: 048
     Dates: start: 20240301, end: 20240603
  2. BENSERAZIDE HYDROCHLORIDE\LEVODOPA [Concomitant]
     Active Substance: BENSERAZIDE HYDROCHLORIDE\LEVODOPA
     Dosage: DAILY DOSE: 62.5 MILLIGRAM
  3. Calcidose [Concomitant]
     Dosage: 500MG/400 UI SACHET PO
  4. DOLIPRANE [Concomitant]
     Active Substance: ACETAMINOPHEN
  5. VALIUM [Concomitant]
     Active Substance: DIAZEPAM
     Dosage: ORAL SOLUTION IN DROPS
  6. ALFUZOSIN [Concomitant]
     Active Substance: ALFUZOSIN
     Dosage: SUSTAINED RELEASE; 10 MG CP PO; ?DAILY DOSE: 10 MILLIGRAM
  7. PAROXETINE [Concomitant]
     Active Substance: PAROXETINE
     Dosage: 20MG CP PO ?DAILY DOSE: 20 MILLIGRAM
  8. VALPROATE SODIUM [Concomitant]
     Active Substance: VALPROATE SODIUM
     Dosage: SUSTAINED-RELEASE GRANULES IN A SACHET; 500 MG SACHET PO?DAILY DOSE: 500 MILLIGRAM
  9. MOVICOL [Concomitant]
     Active Substance: POLYETHYLENE GLYCOL 3350\POTASSIUM CHLORIDE\SODIUM BICARBONATE\SODIUM CHLORIDE
     Dosage: 2 SACHETS

REACTIONS (4)
  - Oedema peripheral [Not Recovered/Not Resolved]
  - Anaemia [Not Recovered/Not Resolved]
  - Thrombocytopenia [Not Recovered/Not Resolved]
  - Neutropenia [Not Recovered/Not Resolved]

NARRATIVE: CASE EVENT DATE: 20240603
